FAERS Safety Report 19216592 (Version 4)
Quarter: 2022Q1

REPORT INFORMATION
  Report Type: Spontaneous
  Country: US (occurrence: US)
  Receive Date: 20210505
  Receipt Date: 20220301
  Transmission Date: 20220423
  Serious: Yes (Other)
  Sender: FDA-Public Use
  Company Number: US-SA-SAC20210504000424

PATIENT
  Age: 63 Year
  Sex: Female

DRUGS (5)
  1. KEVZARA [Suspect]
     Active Substance: SARILUMAB
     Indication: Carcinoid syndrome
     Dosage: 200 MG, QOW
     Route: 058
     Dates: start: 20181012
  2. KEVZARA [Suspect]
     Active Substance: SARILUMAB
     Indication: Rheumatoid arthritis
  3. KEVZARA [Suspect]
     Active Substance: SARILUMAB
     Indication: Osteoarthritis
  4. PREDNISONE [Suspect]
     Active Substance: PREDNISONE
     Dosage: 1 MG
  5. PREDNISONE [Suspect]
     Active Substance: PREDNISONE
     Dosage: 0.5 MG

REACTIONS (5)
  - Rheumatoid arthritis [Unknown]
  - Joint swelling [Unknown]
  - Condition aggravated [Unknown]
  - Arthralgia [Unknown]
  - Product use in unapproved indication [Unknown]

NARRATIVE: CASE EVENT DATE: 20181012
